FAERS Safety Report 6817166-6 (Version None)
Quarter: 2010Q3

REPORT INFORMATION
  Report Type: 
  Country: None (occurrence: None)
  Receive Date: 20100706
  Receipt Date: 20100629
  Transmission Date: 20110219
  Serious: Yes (Hospitalization)
  Sender: FDA-Public Use
  Company Number: US-B.I. PHARMACEUTICALS,INC./RIDGEFIELD-2010-BP-07296BP

PATIENT
  Sex: Female

DRUGS (1)
  1. AGGRENOX [Suspect]

REACTIONS (1)
  - TRANSIENT ISCHAEMIC ATTACK [None]
